FAERS Safety Report 25951918 (Version 1)
Quarter: 2025Q4

REPORT INFORMATION
  Report Type: Other
  Country: GB (occurrence: GB)
  Receive Date: 20251023
  Receipt Date: 20251023
  Transmission Date: 20260117
  Serious: Yes (Hospitalization, Other)
  Sender: STRIDES
  Company Number: GB-PHARMVIT-4556-3352-ER25-RN1616

PATIENT
  Age: 68 Year
  Sex: Female

DRUGS (1)
  1. PREDNISOLONE [Suspect]
     Active Substance: PREDNISOLONE
     Indication: Product used for unknown indication
     Dosage: DAILY
     Route: 065

REACTIONS (6)
  - Adrenal insufficiency [Recovered/Resolved]
  - Metabolic acidosis [Recovered/Resolved]
  - Neuropathy peripheral [Recovered/Resolved]
  - Immunosuppression [Recovered/Resolved]
  - Disseminated coccidioidomycosis [Recovered/Resolved]
  - Septic shock [Recovered/Resolved]
